FAERS Safety Report 8619364-8 (Version None)
Quarter: 2012Q3

REPORT INFORMATION
  Report Type: 
  Country: None (occurrence: None)
  Receive Date: 20120824
  Receipt Date: 20120813
  Transmission Date: 20120928
  Serious: Yes (Hospitalization)
  Sender: FDA-Public Use
  Company Number: US-BRISTOL-MYERS SQUIBB COMPANY-16854127

PATIENT
  Age: 51 Year
  Sex: Female
  Weight: 53 kg

DRUGS (3)
  1. ABATACEPT SUBQ INJECTION 125MG/ML [Suspect]
     Indication: RHEUMATOID ARTHRITIS
     Dosage: NEXT INJECTION ON 13AUG2012
     Route: 058
     Dates: start: 20111201
  2. METHOTREXATE [Suspect]
  3. PREDNISONE TAB [Suspect]
     Dosage: TAPERED DOWN TO 40 MG, 30 MG, 20 MG AND TO 10 MG. STAYED ON 10 MG FOR A COUPLE OF MONTHS AND 5 MG

REACTIONS (8)
  - PAIN [None]
  - JOINT DISLOCATION [None]
  - VOMITING [None]
  - THORACIC VERTEBRAL FRACTURE [None]
  - URINE ODOUR ABNORMAL [None]
  - RIB FRACTURE [None]
  - PNEUMONIA [None]
  - INFLAMMATION [None]
